FAERS Safety Report 12837485 (Version 1)
Quarter: 2016Q4

REPORT INFORMATION
  Report Type: Spontaneous
  Country: IN (occurrence: IN)
  Receive Date: 20161012
  Receipt Date: 20161012
  Transmission Date: 20170207
  Serious: Yes (Other)
  Sender: FDA-Public Use
  Company Number: IN-LUPIN PHARMACEUTICALS INC.-E2B_00004734

PATIENT
  Sex: Female

DRUGS (1)
  1. CEFANTRAL 1G [Suspect]
     Active Substance: CEFOTAXIME SODIUM
     Indication: PROPHYLAXIS
     Route: 042
     Dates: start: 201511

REACTIONS (2)
  - Anaphylactic reaction [Recovered/Resolved]
  - Exposure during pregnancy [Unknown]
